FAERS Safety Report 7320532-6 (Version None)
Quarter: 2011Q1

REPORT INFORMATION
  Report Type: 
  Country: None (occurrence: None)
  Receive Date: 20110228
  Receipt Date: 20110217
  Transmission Date: 20110831
  Serious: Yes (Other)
  Sender: FDA-Public Use
  Company Number: CA-JNJFOC-20110206631

PATIENT
  Sex: Female
  Weight: 81.2 kg

DRUGS (6)
  1. METHOTREXATE [Concomitant]
     Route: 048
  2. REMICADE [Suspect]
     Indication: RHEUMATOID ARTHRITIS
     Dosage: 39TH INFUSION
     Route: 042
  3. NAPROXEN [Concomitant]
     Route: 065
  4. SYNTHROID [Concomitant]
     Route: 065
  5. EFFEXOR [Concomitant]
     Route: 065
  6. TEMAZEPAM [Concomitant]
     Route: 065

REACTIONS (10)
  - SOMNOLENCE [None]
  - INFUSION RELATED REACTION [None]
  - NAUSEA [None]
  - RHEUMATOID ARTHRITIS [None]
  - ANXIETY [None]
  - TACHYPNOEA [None]
  - VOMITING [None]
  - PAIN [None]
  - HEART RATE INCREASED [None]
  - FLUSHING [None]
